FAERS Safety Report 19487195 (Version 1)
Quarter: 2021Q3

REPORT INFORMATION
  Report Type: Spontaneous
  Country: CN (occurrence: CN)
  Receive Date: 20210702
  Receipt Date: 20210702
  Transmission Date: 20211014
  Serious: Yes (Hospitalization)
  Sender: FDA-Public Use
  Company Number: CN-DRREDDYS-OTH/CHN/21/0137210

PATIENT
  Age: 35 Year
  Sex: Female
  Weight: 40 kg

DRUGS (3)
  1. OLANZAPINE. [Suspect]
     Active Substance: OLANZAPINE
     Indication: SCHIZOPHRENIA
     Dosage: 5.000000MG,QD
     Route: 048
     Dates: start: 20210601, end: 20210602
  2. OLANZAPINE. [Suspect]
     Active Substance: OLANZAPINE
     Dosage: 5 MG AT NOON AND 10 MG AT NIGHT
     Route: 048
     Dates: start: 20210603, end: 20210610
  3. RISPERIDONE TABLETS [Suspect]
     Active Substance: RISPERIDONE
     Indication: SCHIZOPHRENIA
     Dosage: 1.000000MG,QD
     Route: 048
     Dates: start: 20210609, end: 20210610

REACTIONS (4)
  - Bradycardia [Recovering/Resolving]
  - Pallor [Unknown]
  - Hypotension [Recovering/Resolving]
  - Dizziness [Recovered/Resolved]

NARRATIVE: CASE EVENT DATE: 20210610
